FAERS Safety Report 12724248 (Version 1)
Quarter: 2016Q3

REPORT INFORMATION
  Report Type: Spontaneous
  Country: CN (occurrence: CN)
  Receive Date: 20160908
  Receipt Date: 20160908
  Transmission Date: 20161109
  Serious: Yes (Hospitalization)
  Sender: FDA-Public Use
  Company Number: CN-ABBVIE-16P-035-1721231-00

PATIENT
  Age: 53 Year
  Sex: Male
  Weight: 45 kg

DRUGS (4)
  1. AMIKACIN SULFATE. [Concomitant]
     Active Substance: AMIKACIN SULFATE
     Indication: PULMONARY TUBERCULOSIS
     Route: 050
     Dates: start: 20160110, end: 20160314
  2. KLACID [Suspect]
     Active Substance: CLARITHROMYCIN
     Indication: PULMONARY TUBERCULOSIS
     Route: 048
     Dates: start: 20160110, end: 20160314
  3. PROTIONAMIDE [Suspect]
     Active Substance: PROTIONAMIDE
     Indication: PULMONARY TUBERCULOSIS
     Route: 048
     Dates: start: 20160110, end: 20160314
  4. CYCLOSERINE. [Concomitant]
     Active Substance: CYCLOSERINE
     Indication: PULMONARY TUBERCULOSIS
     Route: 048
     Dates: start: 20160110, end: 20160314

REACTIONS (1)
  - Hepatic function abnormal [Recovering/Resolving]

NARRATIVE: CASE EVENT DATE: 20160314
